FAERS Safety Report 11078670 (Version 1)
Quarter: 2015Q2

REPORT INFORMATION
  Report Type: Spontaneous
  Country: US (occurrence: None)
  Receive Date: 20150428
  Receipt Date: 20150428
  Transmission Date: 20150821
  Serious: Yes (Other)
  Sender: FDA-Public Use
  Company Number: 2835444

PATIENT
  Age: 46 Year
  Sex: Male

DRUGS (3)
  1. KETAMINE HYDROCHLORIDE. [Suspect]
     Active Substance: KETAMINE HYDROCHLORIDE
     Indication: SURGERY
     Dosage: 20 MG MILLIGRAM (S), UNKNOWN, INTRAVENOUS
     Route: 042
  2. KETAMINE HYDROCHLORIDE. [Suspect]
     Active Substance: KETAMINE HYDROCHLORIDE
     Indication: LACERATION
     Dosage: 20 MG MILLIGRAM (S), UNKNOWN, INTRAVENOUS
     Route: 042
  3. HYDROMORPHONE [Concomitant]
     Active Substance: HYDROMORPHONE

REACTIONS (2)
  - Hypoxia [None]
  - Off label use [None]
